FAERS Safety Report 5459891-8 (Version None)
Quarter: 2007Q3

REPORT INFORMATION
  Report Type: 
  Country: None (occurrence: None)
  Receive Date: 20070919
  Receipt Date: 20070907
  Transmission Date: 20080115
  Serious: Yes (Hospitalization, Other)
  Sender: FDA-Public Use
  Company Number: GB-ROCHE-512421

PATIENT
  Age: 58 Year
  Sex: Female
  Weight: 132 kg

DRUGS (7)
  1. XENICAL [Suspect]
     Indication: OBESITY
     Route: 048
     Dates: start: 20070612, end: 20070804
  2. DIGOXIN [Concomitant]
  3. RAMIPRIL [Concomitant]
  4. FRUSEMIDE [Concomitant]
  5. WARFARIN SODIUM [Concomitant]
  6. OMEPRAZOLE [Concomitant]
  7. RANITIDINE [Concomitant]

REACTIONS (6)
  - ATRIAL FIBRILLATION [None]
  - DYSPNOEA [None]
  - GLUCOSE TOLERANCE IMPAIRED [None]
  - HEART RATE IRREGULAR [None]
  - LEFT VENTRICULAR DYSFUNCTION [None]
  - PULMONARY OEDEMA [None]
